FAERS Safety Report 5595343-2 (Version None)
Quarter: 2008Q1

REPORT INFORMATION
  Report Type: 
  Country: None (occurrence: None)
  Receive Date: 20080117
  Receipt Date: 20080107
  Transmission Date: 20080703
  Serious: Yes (Other)
  Sender: FDA-Public Use
  Company Number: US-PFIZER INC-2008002226

PATIENT
  Sex: Female
  Weight: 43.636 kg

DRUGS (2)
  1. DILANTIN [Suspect]
     Indication: CONVULSION
     Dosage: DAILY DOSE:300MG
  2. DILANTIN [Suspect]
     Dosage: DAILY DOSE:200MG
     Dates: start: 20071224, end: 20080103

REACTIONS (3)
  - ADJUSTMENT DISORDER [None]
  - ANTICONVULSANT DRUG LEVEL INCREASED [None]
  - CONVULSION [None]
